FAERS Safety Report 7230004-5 (Version None)
Quarter: 2011Q1

REPORT INFORMATION
  Report Type: 
  Country: None (occurrence: None)
  Receive Date: 20110117
  Receipt Date: 20110112
  Transmission Date: 20110831
  Serious: Yes (Death, Hospitalization, Other)
  Sender: FDA-Public Use
  Company Number: PHHY2011GB02222

PATIENT
  Age: 81 Year
  Sex: Male
  Weight: 70 kg

DRUGS (5)
  1. CLARITHROMYCIN [Concomitant]
  2. OMEPRAZOLE [Concomitant]
  3. SIMVASTATIN [Suspect]
     Dosage: 40 MG, UNK
     Route: 048
  4. BISOPROLOL FUMARATE [Concomitant]
  5. SIMVASTATIN [Suspect]
     Indication: MYOCARDIAL ISCHAEMIA
     Dosage: 10 MG, UNK
     Route: 048

REACTIONS (6)
  - RHABDOMYOLYSIS [None]
  - BLOOD CREATINE PHOSPHOKINASE INCREASED [None]
  - MYALGIA [None]
  - MALAISE [None]
  - RENAL FAILURE ACUTE [None]
  - BRONCHOPNEUMONIA [None]
